FAERS Safety Report 15772744 (Version 1)
Quarter: 2018Q4

REPORT INFORMATION
  Report Type: Report from Study
  Country: TR (occurrence: TR)
  Receive Date: 20181228
  Receipt Date: 20181228
  Transmission Date: 20190205
  Serious: Yes (Death)
  Sender: FDA-Public Use
  Company Number: TR-TEVA-2018-TR-993426

PATIENT

DRUGS (9)
  1. DEXAMETHASONE. [Suspect]
     Active Substance: DEXAMETHASONE
     Indication: ACUTE LYMPHOCYTIC LEUKAEMIA
     Dosage: HYPER-CVAD REGIMEN; ON DAYS 1-4 AND DAYS 11-14 OF THE COURSES
     Route: 065
  2. METHOTREXATE. [Suspect]
     Active Substance: METHOTREXATE
     Indication: ACUTE LYMPHOCYTIC LEUKAEMIA
     Dosage: HYPER-CVAD REGIMEN; ON DAY-1 OF THE COURSES
     Route: 042
  3. CYTARABINE. [Suspect]
     Active Substance: CYTARABINE
     Indication: ACUTE LYMPHOCYTIC LEUKAEMIA
     Dosage: HYPER-CVAD REGIMEN; ON DAY-8 OF THE COURSES
     Route: 037
  4. DOXORUBICIN [Suspect]
     Active Substance: DOXORUBICIN
     Indication: ACUTE LYMPHOCYTIC LEUKAEMIA
     Dosage: HYPER-CVAD REGIMEN; ON DAY 4 OF THE COURSES
     Route: 042
  5. METHOTREXATE. [Suspect]
     Active Substance: METHOTREXATE
     Indication: ACUTE LYMPHOCYTIC LEUKAEMIA
     Dosage: HYPER-CVAD REGIMEN; OF THE COURSES
     Route: 037
  6. CYTARABINE. [Suspect]
     Active Substance: CYTARABINE
     Indication: ACUTE LYMPHOCYTIC LEUKAEMIA
     Dosage: HYPER-CVAD REGIMEN; ON DAY-2 AND 3 OF THE COURSES
     Route: 042
  7. METHYLPREDNISOLONE. [Suspect]
     Active Substance: METHYLPREDNISOLONE
     Indication: ACUTE LYMPHOCYTIC LEUKAEMIA
     Dosage: HYPER-CVAD REGIMEN; ON DAYS 1-3 OF THE COURSES
     Route: 042
  8. CYCLPHOSPHAMIDE FOR INJECTION USP(CYCLOPHOSPHAMIDE MONOHYDRATE)(POWDER FOR SOLUTION FOR INJECTION) [Suspect]
     Active Substance: CYCLOPHOSPHAMIDE
     Indication: ACUTE LYMPHOCYTIC LEUKAEMIA
     Dosage: HYPER-CVAD REGIMEN; ON DAYS 1-3 OF THE COURSES
     Route: 042
  9. VINCRISTINE [Suspect]
     Active Substance: VINCRISTINE
     Indication: ACUTE LYMPHOCYTIC LEUKAEMIA
     Dosage: HYPER-CVAD REGIMEN; ON DAYS 4 AND 11 OF THE COURSES
     Route: 042

REACTIONS (1)
  - Sepsis [Fatal]
